FAERS Safety Report 14716732 (Version 1)
Quarter: 2018Q2

REPORT INFORMATION
  Report Type: Spontaneous
  Country: DE (occurrence: DE)
  Receive Date: 20180404
  Receipt Date: 20180404
  Transmission Date: 20180711
  Serious: Yes (Other)
  Sender: FDA-Public Use
  Company Number: DE-MYLANLABS-2018M1021013

PATIENT
  Age: 35 Year
  Sex: Male

DRUGS (3)
  1. DEXAMETHASONE. [Suspect]
     Active Substance: DEXAMETHASONE
     Indication: BACK PAIN
     Dosage: DEEP VENTROGLUTEAL INJECTION
     Route: 030
  2. DICLOFENAC [Suspect]
     Active Substance: DICLOFENAC
     Indication: BACK PAIN
     Dosage: DEEP VENTROGLUTEAL INJECTION
     Route: 030
  3. TRAMADOL. [Suspect]
     Active Substance: TRAMADOL
     Indication: INJECTION SITE PAIN
     Dosage: UNK
     Route: 065

REACTIONS (3)
  - Injection site necrosis [Recovered/Resolved]
  - Injection site pain [Recovered/Resolved]
  - Drug ineffective [Unknown]
